FAERS Safety Report 20364357 (Version 7)
Quarter: 2022Q2

REPORT INFORMATION
  Report Type: Report from Study
  Country: CO (occurrence: CO)
  Receive Date: 20220121
  Receipt Date: 20220421
  Transmission Date: 20220721
  Serious: Yes (Hospitalization, Other)
  Sender: FDA-Public Use
  Company Number: CO-ABBVIE-21K-036-4209706-00

PATIENT
  Age: 63 Year
  Sex: Male
  Weight: 58 kg

DRUGS (5)
  1. VENCLEXTA [Suspect]
     Active Substance: VENETOCLAX
     Indication: Chronic lymphocytic leukaemia
     Route: 048
     Dates: start: 20210106, end: 20220211
  2. VENCLEXTA [Suspect]
     Active Substance: VENETOCLAX
     Route: 048
     Dates: start: 20210106
  3. COVID-19 VACCINE NOS [Suspect]
     Active Substance: COVID-19 VACCINE NOS
     Indication: COVID-19 immunisation
     Dosage: ONE DOSE
     Route: 030
  4. COVID-19 VACCINE NOS [Suspect]
     Active Substance: COVID-19 VACCINE NOS
     Dosage: TWO DOSE
     Route: 030
  5. COVID-19 VACCINE NOS [Suspect]
     Active Substance: COVID-19 VACCINE NOS
     Dosage: THIRD DOSE
     Route: 030
     Dates: start: 20211213, end: 20211213

REACTIONS (18)
  - Chest discomfort [Recovering/Resolving]
  - Rhinovirus infection [Recovering/Resolving]
  - Pneumonia bacterial [Recovering/Resolving]
  - Discomfort [Recovering/Resolving]
  - Vaccination site erythema [Recovering/Resolving]
  - Vaccination site swelling [Recovering/Resolving]
  - Vaccination site rash [Recovering/Resolving]
  - Pain [Recovering/Resolving]
  - Oral candidiasis [Recovering/Resolving]
  - Malnutrition [Recovering/Resolving]
  - Discouragement [Recovering/Resolving]
  - Weight decreased [Recovering/Resolving]
  - Myalgia [Recovering/Resolving]
  - Arthralgia [Recovering/Resolving]
  - Rhinorrhoea [Not Recovered/Not Resolved]
  - Pneumonia bacterial [Recovered/Resolved]
  - Constipation [Recovered/Resolved]
  - Colitis [Recovered/Resolved]

NARRATIVE: CASE EVENT DATE: 20211213
